FAERS Safety Report 7127975-4 (Version None)
Quarter: 2010Q4

REPORT INFORMATION
  Report Type: 
  Country: None (occurrence: None)
  Receive Date: 20101112
  Receipt Date: 20101027
  Transmission Date: 20110411
  Serious: Yes (Hospitalization)
  Sender: FDA-Public Use
  Company Number: 021515

PATIENT
  Age: 45 Year
  Sex: Female

DRUGS (25)
  1. ALPRAZOLAM [Suspect]
  2. ISOSORBIDE MONONITRATE [Suspect]
  3. GLYCERYL TRINITRATE [Suspect]
  4. OMEPRAZOLE [Suspect]
  5. LAMOTRIGINE [Suspect]
     Dosage: (200 MG BID ORAL)
     Route: 048
  6. GEODON [Suspect]
     Dosage: (DOSE DECREASED FROM 160MG TO 80MG)
     Dates: start: 20090101
  7. GEODON [Suspect]
     Dosage: (10 MG, STERILE POWDER INTRAMUSCULAR)
     Route: 030
  8. LORAZEPAM [Suspect]
  9. LOPERAMIDE HYDROCHLORIDE [Suspect]
  10. CALCIUM CARBONATE [Suspect]
  11. ASPIRIN [Suspect]
  12. DILTIAZEM HYDROCHLORIDE [Suspect]
  13. NICOTINE [Suspect]
  14. DEPAKOTE [Suspect]
  15. SPIRIVA [Suspect]
  16. TOPAMAX [Suspect]
     Dosage: (400 MG)
  17. ABILIFY [Suspect]
  18. ACETAMINOPHEN [Suspect]
  19. DIPHENHYDRAMINE HYDROCHLORIDE [Suspect]
  20. ZOLPIDEM [Suspect]
  21. SYNTHROID [Suspect]
  22. BACTRIM [Suspect]
  23. MAGNESIUM HYDROXIDE [Suspect]
  24. HALDOL [Suspect]
  25. FISH OIL [Suspect]

REACTIONS (3)
  - COMA [None]
  - CONDITION AGGRAVATED [None]
  - MENTAL DISORDER [None]
